FAERS Safety Report 20963561 (Version 1)
Quarter: 2022Q2

REPORT INFORMATION
  Report Type: Spontaneous
  Country: US (occurrence: US)
  Receive Date: 20220615
  Receipt Date: 20220615
  Transmission Date: 20220721
  Serious: No
  Sender: FDA-Public Use
  Company Number: PR-BIOVITRUM-2021PR7631

PATIENT
  Sex: Male

DRUGS (1)
  1. SYNAGIS [Suspect]
     Active Substance: PALIVIZUMAB
     Indication: Arteriovenous malformation
     Route: 030
     Dates: start: 20210816

REACTIONS (3)
  - Erythema [Unknown]
  - Condition aggravated [Unknown]
  - Rash [Unknown]
